FAERS Safety Report 9611276 (Version 5)
Quarter: 2014Q1

REPORT INFORMATION
  Report Type: Spontaneous
  Country: US (occurrence: US)
  Receive Date: 20131010
  Receipt Date: 20140115
  Transmission Date: 20141002
  Serious: No
  Sender: FDA-Public Use
  Company Number: US-009507513-1310USA003272

PATIENT
  Age: 26 Year
  Sex: Female
  Weight: 90.25 kg

DRUGS (2)
  1. NEXPLANON [Suspect]
     Dosage: 68 MG STRENGTH, DOSE UNKNOWN
     Route: 059
     Dates: start: 20130913, end: 20130913
  2. NEXPLANON [Suspect]
     Dosage: 68 MG STRENGTH, DOSE UNKNOWN
     Route: 059
     Dates: start: 20130913, end: 20131028

REACTIONS (9)
  - Keloid scar [Unknown]
  - Device difficult to use [Recovered/Resolved]
  - Product quality issue [Recovered/Resolved]
  - Complication of device insertion [Recovered/Resolved]
  - Device expulsion [Recovered/Resolved]
  - Pain in extremity [Unknown]
  - Implant site pruritus [Unknown]
  - Implant site discharge [Unknown]
  - Implant site infection [Unknown]
